FAERS Safety Report 10912596 (Version 3)
Quarter: 2015Q2

REPORT INFORMATION
  Report Type: Spontaneous
  Country: CN (occurrence: CN)
  Receive Date: 20150313
  Receipt Date: 20150518
  Transmission Date: 20150821
  Serious: No
  Sender: FDA-Public Use
  Company Number: CN-ASTELLAS-2015US007494

PATIENT
  Age: 55 Year
  Sex: Male

DRUGS (1)
  1. PROTOPIC [Suspect]
     Active Substance: TACROLIMUS
     Indication: BALANOPOSTHITIS
     Dosage: UNK, Q3D OR 4D
     Route: 061
     Dates: start: 2014

REACTIONS (2)
  - Product use issue [Not Recovered/Not Resolved]
  - Muscular weakness [Recovering/Resolving]

NARRATIVE: CASE EVENT DATE: 2014
